FAERS Safety Report 10064935 (Version 3)
Quarter: 2014Q3

REPORT INFORMATION
  Report Type: Report from Study
  Country: US (occurrence: US)
  Receive Date: 20140408
  Receipt Date: 20140721
  Transmission Date: 20150326
  Serious: Yes (Hospitalization)
  Sender: FDA-Public Use
  Company Number: US-SA-2014SA038712

PATIENT
  Age: 75 Year
  Sex: Male
  Weight: 79.4 kg

DRUGS (19)
  1. DOCETAXEL [Suspect]
     Active Substance: DOCETAXEL
     Indication: SARCOMA METASTATIC
     Dosage: DAY 8 OF 21 DAY CYCLE
     Route: 042
     Dates: start: 20140108, end: 20140219
  2. LOVASTATIN. [Concomitant]
     Active Substance: LOVASTATIN
  3. CENTRUM SILVER [Concomitant]
     Active Substance: VITAMINS
  4. ALLOPURINOL. [Concomitant]
     Active Substance: ALLOPURINOL
  5. INSULIN [Concomitant]
     Active Substance: INSULIN NOS
  6. ATIVAN [Concomitant]
     Active Substance: LORAZEPAM
  7. AMLODIPINE [Concomitant]
     Active Substance: AMLODIPINE BESYLATE
  8. DORZOLAMIDE [Concomitant]
     Active Substance: DORZOLAMIDE
  9. RED BLOOD CELLS [Concomitant]
     Active Substance: HUMAN RED BLOOD CELL
  10. COSOPT [Concomitant]
     Active Substance: DORZOLAMIDE HYDROCHLORIDE\TIMOLOL MALEATE
  11. GLIPIZIDE. [Concomitant]
     Active Substance: GLIPIZIDE
  12. GEMCITABINE [Suspect]
     Active Substance: GEMCITABINE\GEMCITABINE HYDROCHLORIDE
     Indication: SARCOMA METASTATIC
     Route: 042
     Dates: start: 20131230, end: 20140312
  13. NEULASTA [Concomitant]
     Active Substance: PEGFILGRASTIM
  14. BLINDED THERAPY [Suspect]
     Active Substance: UNSPECIFIED INGREDIENT
     Indication: SARCOMA METASTATIC
     Dosage: DAY 1 AND 8 OF 21 DAY CYCLE
     Route: 042
     Dates: start: 20131230, end: 20140312
  15. ALPHAGAN P [Concomitant]
     Active Substance: BRIMONIDINE TARTRATE
  16. FLUTICASONE [Concomitant]
     Active Substance: FLUTICASONE\FLUTICASONE PROPIONATE
  17. LATANOPROST. [Concomitant]
     Active Substance: LATANOPROST
  18. FUROSEMIDE. [Concomitant]
     Active Substance: FUROSEMIDE
  19. IPRATROPIUM [Concomitant]
     Active Substance: IPRATROPIUM

REACTIONS (3)
  - Pneumonitis [Recovered/Resolved]
  - Hypoxia [Recovered/Resolved]
  - Hypoglycaemia [Recovered/Resolved]

NARRATIVE: CASE EVENT DATE: 20140228
